FAERS Safety Report 9205710 (Version 1)
Quarter: 2013Q2

REPORT INFORMATION
  Report Type: Spontaneous
  Country: US (occurrence: US)
  Receive Date: 20130403
  Receipt Date: 20130403
  Transmission Date: 20140414
  Serious: Yes (Death)
  Sender: FDA-Public Use
  Company Number: US-PFIZER INC-2013102292

PATIENT
  Age: 76 Year
  Sex: Female

DRUGS (9)
  1. SUTENT [Suspect]
     Indication: RENAL CANCER
     Dosage: 50 MG, UNK
     Dates: start: 20130312
  2. BUPROPION HCL ER (XL) [Concomitant]
     Dosage: UNK
  3. PAROXETINE HYDROCHLORIDE [Concomitant]
     Dosage: UNK
  4. CIMETIDINE [Concomitant]
     Dosage: UNK
  5. VITAMIN D [Concomitant]
     Dosage: UNK
  6. HYDROCODONE-ACETAMINOPHEN [Concomitant]
     Dosage: UNK
  7. LANSOPRAZOLE [Concomitant]
     Dosage: UNK
  8. METOPROLOL TARTRATE [Concomitant]
     Dosage: UNK
  9. NIACIN [Concomitant]
     Dosage: UNK

REACTIONS (1)
  - Death [Fatal]
